FAERS Safety Report 8438371-1 (Version None)
Quarter: 2012Q2

REPORT INFORMATION
  Report Type: 
  Country: None (occurrence: None)
  Receive Date: 20120614
  Receipt Date: 20120608
  Transmission Date: 20120825
  Serious: Yes (Hospitalization, Disabling, Other)
  Sender: FDA-Public Use
  Company Number: US-MERCK-1203USA03377

PATIENT
  Age: 67 Year
  Sex: Female

DRUGS (7)
  1. FOSAMAX [Suspect]
     Indication: OSTEOPOROSIS
     Route: 048
     Dates: end: 20110101
  2. FOSAMAX [Suspect]
     Indication: OSTEOPENIA
     Route: 048
     Dates: end: 20110101
  3. FOSAMAX [Suspect]
     Route: 048
     Dates: start: 20060301, end: 20080101
  4. FOSAMAX [Suspect]
     Route: 048
     Dates: start: 20060301, end: 20080101
  5. FOSAMAX [Suspect]
     Route: 048
  6. FOSAMAX [Suspect]
     Route: 048
     Dates: start: 20030101, end: 20050101
  7. FOSAMAX [Suspect]
     Route: 048
     Dates: start: 20030101, end: 20050101

REACTIONS (10)
  - LOW TURNOVER OSTEOPATHY [None]
  - UPPER LIMB FRACTURE [None]
  - TOOTH DISORDER [None]
  - HYPERTENSION [None]
  - BLOOD DISORDER [None]
  - OSTEOPOROSIS [None]
  - MULTIPLE FRACTURES [None]
  - WRIST FRACTURE [None]
  - FEMUR FRACTURE [None]
  - ORAL DISORDER [None]
